FAERS Safety Report 4816716-9 (Version None)
Quarter: 2005Q4

REPORT INFORMATION
  Report Type: 
  Country: None (occurrence: None)
  Receive Date: 20051031
  Receipt Date: 20051031
  Transmission Date: 20060501
  Serious: Yes (Other)
  Sender: FDA-Public Use
  Company Number: None

PATIENT
  Age: 25 Year
  Sex: Male
  Weight: 89.8122 kg

DRUGS (2)
  1. PAROXETINE TAB  30MG  APOTEX [Suspect]
     Indication: ANXIETY
     Dosage: 45MG  PER DAY PO
     Route: 048
     Dates: start: 20051005, end: 20051016
  2. PAROXETINE TAB  30MG  APOTEX [Suspect]
     Indication: PANIC ATTACK
     Dosage: 45MG  PER DAY PO
     Route: 048
     Dates: start: 20051005, end: 20051016

REACTIONS (6)
  - ABNORMAL BEHAVIOUR [None]
  - ALCOHOLISM [None]
  - ANXIETY [None]
  - DRUG WITHDRAWAL SYNDROME [None]
  - PANIC ATTACK [None]
  - PERSONALITY CHANGE [None]
